FAERS Safety Report 5114967-X (Version None)
Quarter: 2006Q3

REPORT INFORMATION
  Report Type: 
  Country: None (occurrence: None)
  Receive Date: 20060926
  Receipt Date: 20060920
  Transmission Date: 20061208
  Serious: Yes (Hospitalization)
  Sender: FDA-Public Use
  Company Number: PL-MERCK-0609POL00007

PATIENT
  Age: 75 Year
  Sex: Male

DRUGS (1)
  1. PRINIVIL [Suspect]
     Indication: HYPERTENSION
     Route: 065

REACTIONS (1)
  - PEMPHIGOID [None]
